FAERS Safety Report 4845562-5 (Version None)
Quarter: 2005Q4

REPORT INFORMATION
  Report Type: 
  Country: None (occurrence: None)
  Receive Date: 20051205
  Receipt Date: 20020516
  Transmission Date: 20060501
  Serious: Yes (Death)
  Sender: FDA-Public Use
  Company Number: US-MERCK-0205USA01986

PATIENT
  Age: 79 Year
  Sex: Male
  Weight: 107 kg

DRUGS (7)
  1. VIOXX [Suspect]
     Indication: RHEUMATOID ARTHRITIS
     Route: 048
     Dates: start: 20000512, end: 20000101
  2. PREDNISONE [Concomitant]
     Indication: ARTHRITIS
     Route: 065
  3. SINGULAIR [Concomitant]
     Indication: ASTHMA
     Route: 048
  4. LORATADINE [Concomitant]
     Indication: HYPERSENSITIVITY
     Route: 065
  5. LASIX [Concomitant]
     Route: 065
  6. PLAQUENIL [Concomitant]
     Indication: ARTHRITIS
     Route: 065
  7. [THERAPY UNSPECIFIED] [Concomitant]
     Indication: ARTHRITIS
     Route: 065

REACTIONS (1)
  - MYOCARDIAL INFARCTION [None]
